FAERS Safety Report 18088301 (Version 1)
Quarter: 2020Q3

REPORT INFORMATION
  Report Type: Spontaneous
  Country: JP (occurrence: JP)
  Receive Date: 20200729
  Receipt Date: 20200729
  Transmission Date: 20201103
  Serious: Yes (Hospitalization)
  Sender: FDA-Public Use
  Company Number: JP-EISAI MEDICAL RESEARCH-EC-2020-077933

PATIENT
  Sex: Female

DRUGS (2)
  1. HALAVEN [Suspect]
     Active Substance: ERIBULIN MESYLATE
     Indication: PRODUCT USED FOR UNKNOWN INDICATION
     Route: 042
     Dates: start: 20200529, end: 202006
  2. HALAVEN [Suspect]
     Active Substance: ERIBULIN MESYLATE
     Route: 042
     Dates: start: 202007

REACTIONS (2)
  - Haemoglobin decreased [Unknown]
  - Decreased appetite [Recovered/Resolved]

NARRATIVE: CASE EVENT DATE: 20200630
